FAERS Safety Report 5147522-6 (Version None)
Quarter: 2006Q4

REPORT INFORMATION
  Report Type: 
  Country: None (occurrence: None)
  Receive Date: 20061109
  Receipt Date: 20061003
  Transmission Date: 20070319
  Serious: Yes (Hospitalization)
  Sender: FDA-Public Use
  Company Number: JP-ABBOTT-06P-087-0345781-00

PATIENT
  Sex: Male
  Weight: 71.1 kg

DRUGS (5)
  1. CEFZON [Suspect]
     Indication: PYREXIA
     Route: 048
     Dates: start: 20060202, end: 20060204
  2. LOXOPROFEN [Suspect]
     Indication: PYREXIA
     Route: 048
     Dates: start: 20060202, end: 20060204
  3. PL GRAN. [Concomitant]
     Indication: NASOPHARYNGITIS
     Dates: start: 20060202, end: 20060204
  4. MOXIFLOXACIN HYDROCHLORIDE [Concomitant]
     Indication: DRUG USE FOR UNKNOWN INDICATION
     Dates: start: 20060212, end: 20060215
  5. DICLOFENAC [Concomitant]
     Indication: DRUG USE FOR UNKNOWN INDICATION
     Dates: start: 20060212, end: 20060215

REACTIONS (6)
  - DIALYSIS [None]
  - LYMPHOCYTE STIMULATION TEST POSITIVE [None]
  - NEPHRITIS INTERSTITIAL [None]
  - PYREXIA [None]
  - RENAL FAILURE ACUTE [None]
  - SKIN EXFOLIATION [None]
